FAERS Safety Report 9833932 (Version 2)
Quarter: 2014Q1

REPORT INFORMATION
  Report Type: Spontaneous
  Country: US (occurrence: US)
  Receive Date: 20140122
  Receipt Date: 20140128
  Transmission Date: 20141002
  Serious: No
  Sender: FDA-Public Use
  Company Number: US-BIOGENIDEC-2014BI006027

PATIENT
  Sex: Female
  Weight: 71 kg

DRUGS (4)
  1. TECFIDERA [Suspect]
     Indication: MULTIPLE SCLEROSIS
     Dates: end: 201401
  2. AMBIEN [Concomitant]
     Route: 048
  3. SIMVISTATIN [Concomitant]
     Route: 048
  4. PREVACID [Concomitant]
     Route: 048

REACTIONS (4)
  - Decreased appetite [Recovered/Resolved]
  - Muscle spasms [Recovered/Resolved]
  - Adverse event [Unknown]
  - Flushing [Recovered/Resolved]
